FAERS Safety Report 7061750-4 (Version None)
Quarter: 2010Q4

REPORT INFORMATION
  Report Type: 
  Country: None (occurrence: None)
  Receive Date: 20101026
  Receipt Date: 20100311
  Transmission Date: 20110411
  Serious: No
  Sender: FDA-Public Use
  Company Number: US-TYCO HEALTHCARE/MALLINCKRODT-T201000845

PATIENT
  Sex: Male

DRUGS (4)
  1. THALLOUS CHLORIDE TL-201 [Suspect]
     Indication: SCAN MYOCARDIAL PERFUSION
     Dosage: 4 MCI, SINGLE
     Route: 042
     Dates: start: 20100302, end: 20100302
  2. ASPIRIN [Concomitant]
     Dosage: UNK
     Dates: start: 20100302
  3. PANTOPRAZOLE [Concomitant]
     Dosage: UNK
     Dates: start: 20100302
  4. NICOTINE [Concomitant]
     Dosage: UNK
     Dates: start: 20100302

REACTIONS (2)
  - NAUSEA [None]
  - SYNCOPE [None]
